FAERS Safety Report 24284828 (Version 1)
Quarter: 2024Q3

REPORT INFORMATION
  Report Type: Spontaneous
  Country: GB (occurrence: GB)
  Receive Date: 20240905
  Receipt Date: 20240905
  Transmission Date: 20241017
  Serious: Yes (Hospitalization, Other)
  Sender: TEVA
  Company Number: GB-PHARMVIT-4556-3352-ER24-RN1157

PATIENT
  Age: 53 Year
  Sex: Female

DRUGS (1)
  1. PREDNISOLONE [Suspect]
     Active Substance: PREDNISOLONE
     Indication: Adverse drug reaction
     Route: 065

REACTIONS (2)
  - Immunosuppression [Recovering/Resolving]
  - Viral vasculitis [Recovering/Resolving]
